FAERS Safety Report 9786128 (Version 1)
Quarter: 2013Q4

REPORT INFORMATION
  Report Type: Spontaneous
  Country: RU (occurrence: RU)
  Receive Date: 20131227
  Receipt Date: 20131227
  Transmission Date: 20140711
  Serious: Yes (Other)
  Sender: FDA-Public Use
  Company Number: PHHY2013RU152104

PATIENT
  Age: 51 Year
  Sex: Male

DRUGS (1)
  1. FORADIL COMBI [Suspect]
     Route: 055

REACTIONS (3)
  - Rhinorrhoea [Recovered/Resolved]
  - Oedema mouth [Recovered/Resolved]
  - Pruritus [Recovered/Resolved]
